FAERS Safety Report 25976453 (Version 1)
Quarter: 2025Q4

REPORT INFORMATION
  Report Type: Spontaneous
  Country: EU (occurrence: EU)
  Receive Date: 20251029
  Receipt Date: 20251029
  Transmission Date: 20260118
  Serious: Yes (Other)
  Sender: GE HEALTHCARE
  Company Number: None

PATIENT
  Age: 63 Year
  Sex: Female

DRUGS (4)
  1. OMNIPAQUE [Suspect]
     Active Substance: IOHEXOL
     Indication: Computerised tomogram abdomen
     Dosage: 120 ML, TOTAL
     Route: 042
     Dates: start: 20251004
  2. LERCANIDIPINE HYDROCHLORIDE [Concomitant]
     Active Substance: LERCANIDIPINE HYDROCHLORIDE
     Indication: Hypertension
     Dosage: 1 DF, QD
     Route: 048
  3. Sodio cloruro baxter s.p.a. [Concomitant]
     Indication: Catheter management
     Dosage: 60 ML, QD
     Route: 042
     Dates: start: 20251004, end: 20251004
  4. LOBIDIUR [Concomitant]
     Active Substance: HYDROCHLOROTHIAZIDE\NEBIVOLOL HYDROCHLORIDE
     Indication: Hypertension
     Dosage: 1 DF, QD
     Route: 048

REACTIONS (4)
  - Device breakage [Recovered/Resolved]
  - Vascular access site swelling [Recovering/Resolving]
  - Administration site pain [Recovering/Resolving]
  - Infusion site extravasation [Recovering/Resolving]

NARRATIVE: CASE EVENT DATE: 20251004
